FAERS Safety Report 9922362 (Version 1)
Quarter: 2014Q1

REPORT INFORMATION
  Report Type: Spontaneous
  Country: US (occurrence: None)
  Receive Date: 20140224
  Receipt Date: 20140224
  Transmission Date: 20141002
  Serious: Yes (Life-Threatening, Hospitalization, Disabling, Other)
  Sender: FDA-Public Use
  Company Number: None

PATIENT
  Age: 57 Year
  Sex: Male
  Weight: 83.92 kg

DRUGS (1)
  1. ANDROGEL [Suspect]
     Indication: LIBIDO DECREASED
     Dosage: 2 PUMPS, DAILY, ONCE DAILY, APPLIED TO A SURFACE, USUALLY THE SKIN
     Route: 061
     Dates: start: 20100331, end: 20110831

REACTIONS (4)
  - Pulmonary embolism [None]
  - Thrombosis [None]
  - Cardiac valve disease [None]
  - Local swelling [None]
